FAERS Safety Report 9509737 (Version 2)
Quarter: 2013Q3

REPORT INFORMATION
  Report Type: Spontaneous
  Country: US (occurrence: US)
  Receive Date: 20130909
  Receipt Date: 20130909
  Transmission Date: 20140515
  Serious: Yes (Other)
  Sender: FDA-Public Use
  Company Number: US-BRISTOL-MYERS SQUIBB COMPANY-18885558

PATIENT
  Age: 27 Year
  Sex: Female

DRUGS (4)
  1. ABILIFY [Suspect]
     Indication: BIPOLAR I DISORDER
     Dates: start: 20130304, end: 20130312
  2. INVEGA [Suspect]
     Indication: BIPOLAR I DISORDER
     Dates: start: 20130304, end: 20130312
  3. SYNTHROID [Concomitant]
  4. ACYCLOVIR [Concomitant]

REACTIONS (1)
  - Hypersensitivity [Unknown]
